FAERS Safety Report 10055579 (Version 1)
Quarter: 2014Q2

REPORT INFORMATION
  Report Type: Other
  Country: US (occurrence: US)
  Receive Date: 20140403
  Receipt Date: 20140403
  Transmission Date: 20141212
  Serious: Yes (Other)
  Sender: FDA-Public Use
  Company Number: US-SHIRE-US201400849

PATIENT
  Sex: Female

DRUGS (1)
  1. VPRIV [Suspect]
     Indication: GAUCHER^S DISEASE
     Dosage: UNK (14), OTHER (BI-MONTHLY)
     Route: 041
     Dates: start: 20111018

REACTIONS (3)
  - Hepatosplenomegaly [Not Recovered/Not Resolved]
  - Fatigue [Not Recovered/Not Resolved]
  - Bone pain [Not Recovered/Not Resolved]
